FAERS Safety Report 8249357-4 (Version None)
Quarter: 2012Q1

REPORT INFORMATION
  Report Type: 
  Country: None (occurrence: None)
  Receive Date: 20120316
  Receipt Date: 20120312
  Transmission Date: 20120608
  Serious: Yes (Other)
  Sender: FDA-Public Use
  Company Number: 2012031392

PATIENT
  Sex: Female

DRUGS (1)
  1. HIZENTRA [Suspect]
     Indication: PELVIC INFLAMMATORY DISEASE
     Dosage: (7 G 1X/WEEK, IN 4 SITES SUBCUTANEOUS)
     Route: 058
     Dates: start: 20111201

REACTIONS (10)
  - FLUID RETENTION [None]
  - INFUSION SITE MASS [None]
  - INFUSION SITE HAEMATOMA [None]
  - INFUSION SITE PAIN [None]
  - INFUSION SITE PRURITUS [None]
  - ABDOMINAL DISTENSION [None]
  - INFUSION SITE INDURATION [None]
  - INFUSION SITE DISCOLOURATION [None]
  - PNEUMONIA [None]
  - INFUSION SITE ERYTHEMA [None]
